FAERS Safety Report 8001171-0 (Version None)
Quarter: 2011Q4

REPORT INFORMATION
  Report Type: 
  Country: None (occurrence: None)
  Receive Date: 20111222
  Receipt Date: 20111219
  Transmission Date: 20120403
  Serious: Yes (Hospitalization)
  Sender: FDA-Public Use
  Company Number: US-AMGEN-USACT2011065544

PATIENT
  Age: 68 Year

DRUGS (3)
  1. BLINDED DARBEPOETIN ALFA [Suspect]
     Dates: start: 20091222
  2. BLINDED DARBEPOETIN ALFA [Suspect]
     Indication: CARDIAC FAILURE
     Dates: start: 20091222
  3. PLACEBO [Suspect]
     Indication: CARDIAC FAILURE
     Dates: start: 20091222

REACTIONS (1)
  - HYPERTENSIVE CRISIS [None]
